FAERS Safety Report 25768759 (Version 1)
Quarter: 2025Q3

REPORT INFORMATION
  Report Type: Spontaneous
  Country: US (occurrence: None)
  Receive Date: 20250905
  Receipt Date: 20250905
  Transmission Date: 20251020
  Serious: Yes (Hospitalization)
  Sender: FDA-CTU
  Company Number: None

PATIENT
  Sex: Female

DRUGS (4)
  1. OPSUMIT [Suspect]
     Active Substance: MACITENTAN
     Indication: Pulmonary arterial hypertension
     Dosage: 10 MG DAILY ORAL
     Route: 048
  2. STERILE DILUENT FOR REMODULIN [Concomitant]
     Active Substance: WATER
  3. DEVICE [Concomitant]
     Active Substance: DEVICE
  4. REMODULIN [Suspect]
     Active Substance: TREPROSTINIL

REACTIONS (5)
  - Staphylococcal infection [None]
  - Transient ischaemic attack [None]
  - Lung disorder [None]
  - Cardiac disorder [None]
  - Dyspnoea [None]
